FAERS Safety Report 5648270-6 (Version None)
Quarter: 2008Q1

REPORT INFORMATION
  Report Type: 
  Country: None (occurrence: None)
  Receive Date: 20080304
  Receipt Date: 20080218
  Transmission Date: 20080703
  Serious: Yes (Other)
  Sender: FDA-Public Use
  Company Number: FR-ROCHE-548166

PATIENT
  Age: 29 Year
  Sex: Female
  Weight: 50 kg

DRUGS (5)
  1. RIVOTRIL [Suspect]
     Indication: DRUG USE FOR UNKNOWN INDICATION
     Route: 065
  2. BACTRIM [Concomitant]
  3. NUREFLEX [Concomitant]
  4. CODOLIPRANE [Concomitant]
  5. TOPLEXIL [Concomitant]

REACTIONS (1)
  - ROAD TRAFFIC ACCIDENT [None]
